FAERS Safety Report 20630648 (Version 13)
Quarter: 2024Q3

REPORT INFORMATION
  Report Type: Spontaneous
  Country: US (occurrence: US)
  Receive Date: 20220324
  Receipt Date: 20240805
  Transmission Date: 20241017
  Serious: Yes (Other)
  Sender: SANOFI AVENTIS
  Company Number: US-SA-2022SA097609

PATIENT
  Age: 29 Year
  Sex: Male
  Weight: 71.2 kg

DRUGS (18)
  1. ALPROLIX [Suspect]
     Active Substance: EFTRENONACOG ALFA
     Indication: Factor IX deficiency
     Dosage: 6,300 TO 7,000 UNITS, QOW
     Route: 042
     Dates: start: 20151118, end: 2016
  2. ALPROLIX [Suspect]
     Active Substance: EFTRENONACOG ALFA
     Indication: Factor IX deficiency
     Dosage: 6,300 TO 7,000 UNITS, QOW
     Route: 042
     Dates: start: 20151118, end: 2016
  3. ALPROLIX [Suspect]
     Active Substance: EFTRENONACOG ALFA
     Dosage: 7170 IU (6453-7887), Q10D, STRENGTH: 3029U, 4128U
     Route: 042
     Dates: start: 20161118, end: 202302
  4. ALPROLIX [Suspect]
     Active Substance: EFTRENONACOG ALFA
     Dosage: 7170 IU (6453-7887), Q10D, STRENGTH: 3029U, 4128U
     Route: 042
     Dates: start: 20161118, end: 202302
  5. ALPROLIX [Suspect]
     Active Substance: EFTRENONACOG ALFA
     Dosage: 6900 IU, Q10D
     Route: 042
     Dates: start: 202201
  6. ALPROLIX [Suspect]
     Active Substance: EFTRENONACOG ALFA
     Dosage: 6900 IU, Q10D
     Route: 042
     Dates: start: 202201
  7. ALPROLIX [Suspect]
     Active Substance: EFTRENONACOG ALFA
     Dosage: 3455 IU, PRN
     Route: 042
     Dates: start: 202201
  8. ALPROLIX [Suspect]
     Active Substance: EFTRENONACOG ALFA
     Dosage: 3455 IU, PRN
     Route: 042
     Dates: start: 202201
  9. ALPROLIX [Suspect]
     Active Substance: EFTRENONACOG ALFA
     Dosage: 2000 U, Q10D
     Route: 042
     Dates: start: 202202
  10. ALPROLIX [Suspect]
     Active Substance: EFTRENONACOG ALFA
     Dosage: 2000 U, Q10D
     Route: 042
     Dates: start: 202202
  11. ALPROLIX [Suspect]
     Active Substance: EFTRENONACOG ALFA
     Dosage: 4000 U, Q10D
     Route: 042
     Dates: start: 202202
  12. ALPROLIX [Suspect]
     Active Substance: EFTRENONACOG ALFA
     Dosage: 4000 U, Q10D
     Route: 042
     Dates: start: 202202
  13. ALPROLIX [Suspect]
     Active Substance: EFTRENONACOG ALFA
     Dosage: 3000 U, QW
     Route: 042
     Dates: start: 202202
  14. ALPROLIX [Suspect]
     Active Substance: EFTRENONACOG ALFA
     Dosage: 3000 U, QW
     Route: 042
     Dates: start: 202202
  15. ALPROLIX [Suspect]
     Active Substance: EFTRENONACOG ALFA
     Dosage: 600 U, QW
     Route: 042
     Dates: start: 202202
  16. ALPROLIX [Suspect]
     Active Substance: EFTRENONACOG ALFA
     Dosage: 600 U, QW
     Route: 042
     Dates: start: 202202
  17. ALPROLIX [Suspect]
     Active Substance: EFTRENONACOG ALFA
     Dosage: 3685  U, QW
     Route: 042
     Dates: start: 202302
  18. ALPROLIX [Suspect]
     Active Substance: EFTRENONACOG ALFA
     Dosage: 3685  U, QW
     Route: 042
     Dates: start: 202302

REACTIONS (12)
  - Haemorrhage [Recovered/Resolved]
  - Haemorrhage [Unknown]
  - Haemorrhage [Recovered/Resolved]
  - Haemorrhage [Not Recovered/Not Resolved]
  - Haemorrhage [Recovered/Resolved]
  - Haemorrhage [Unknown]
  - Haemorrhage [Not Recovered/Not Resolved]
  - Haemorrhage [Unknown]
  - Ear infection [Unknown]
  - Haemorrhage [Not Recovered/Not Resolved]
  - Haemorrhage [Recovered/Resolved]
  - Haemorrhage [Unknown]

NARRATIVE: CASE EVENT DATE: 20220309
